FAERS Safety Report 9200476 (Version 1)
Quarter: 2013Q1

REPORT INFORMATION
  Report Type: Report from Study
  Country: CZ (occurrence: CZ)
  Receive Date: 20130329
  Receipt Date: 20130329
  Transmission Date: 20140127
  Serious: Yes (Other)
  Sender: FDA-Public Use
  Company Number: CZ-ABBOTT-13P-217-1068452-00

PATIENT
  Age: 57 Year
  Sex: Female

DRUGS (1)
  1. HUMIRA [Suspect]
     Indication: PRODUCT USED FOR UNKNOWN INDICATION
     Route: 058
     Dates: end: 20121202

REACTIONS (8)
  - Tuberculin test positive [Recovering/Resolving]
  - Weight decreased [Recovering/Resolving]
  - Night sweats [Recovering/Resolving]
  - Fatigue [Recovering/Resolving]
  - Erythema [Recovering/Resolving]
  - Arthralgia [Recovering/Resolving]
  - Infection [Unknown]
  - Latent tuberculosis [Unknown]
